FAERS Safety Report 6894835-3 (Version None)
Quarter: 2010Q3

REPORT INFORMATION
  Report Type: 
  Country: None (occurrence: None)
  Receive Date: 20100728
  Receipt Date: 20100722
  Transmission Date: 20110219
  Serious: Yes (Hospitalization)
  Sender: FDA-Public Use
  Company Number: 103402

PATIENT
  Age: 34 Year
  Sex: Female

DRUGS (1)
  1. AMIKACIN SULFATE [Suspect]
     Indication: TUBERCULOSIS
     Dosage: IV
     Route: 042

REACTIONS (4)
  - ALKALOSIS HYPOCHLORAEMIC [None]
  - HYPOKALAEMIA [None]
  - HYPOMAGNESAEMIA [None]
  - TETANY [None]
